FAERS Safety Report 10017912 (Version 1)
Quarter: 2014Q1

REPORT INFORMATION
  Report Type: Spontaneous
  Country: US (occurrence: US)
  Receive Date: 20140318
  Receipt Date: 20140318
  Transmission Date: 20141002
  Serious: Yes (Other)
  Sender: FDA-Public Use
  Company Number: US-BRISTOL-MYERS SQUIBB COMPANY-18867622

PATIENT
  Age: 73 Year
  Sex: Male
  Weight: 74.37 kg

DRUGS (1)
  1. ERBITUX SOLN FOR INF [Suspect]
     Indication: COLORECTAL CANCER METASTATIC
     Dosage: ON WEDNESDAY
     Route: 042
     Dates: start: 2012

REACTIONS (1)
  - Rash [Unknown]
